FAERS Safety Report 24193849 (Version 3)
Quarter: 2024Q3

REPORT INFORMATION
  Report Type: Spontaneous
  Country: US (occurrence: US)
  Receive Date: 20240809
  Receipt Date: 20240914
  Transmission Date: 20241016
  Serious: No
  Sender: SANOFI AVENTIS
  Company Number: US-SA-SAC20240806000524

PATIENT
  Age: 69 Year
  Sex: Female

DRUGS (2)
  1. DUPIXENT [Suspect]
     Active Substance: DUPILUMAB
     Indication: Pemphigoid
     Dosage: 600 MG 1X
     Route: 058
     Dates: start: 20240527, end: 20240527
  2. DUPIXENT [Suspect]
     Active Substance: DUPILUMAB
     Indication: Oral pain
     Dosage: 300MG QOW
     Route: 058
     Dates: start: 202406

REACTIONS (6)
  - Stomatitis [Unknown]
  - Condition aggravated [Unknown]
  - Injection site bruising [Unknown]
  - Product use in unapproved indication [Unknown]
  - Accidental exposure to product [Unknown]
  - Exposure via skin contact [Unknown]

NARRATIVE: CASE EVENT DATE: 20240101
